FAERS Safety Report 6095463-2 (Version None)
Quarter: 2009Q1

REPORT INFORMATION
  Report Type: 
  Country: None (occurrence: None)
  Receive Date: 20090227
  Receipt Date: 20080415
  Transmission Date: 20090719
  Serious: No
  Sender: FDA-Public Use
  Company Number: A0721610A

PATIENT
  Age: 25 Year
  Sex: Male
  Weight: 77.3 kg

DRUGS (3)
  1. LAMICTAL [Suspect]
     Indication: PSYCHOTHERAPY
     Dosage: 125MG PER DAY
     Route: 048
     Dates: start: 20080402, end: 20080407
  2. ADDERALL 10 [Concomitant]
     Indication: ATTENTION DEFICIT/HYPERACTIVITY DISORDER
     Dosage: 20MG TWICE PER DAY
  3. KLONOPIN [Concomitant]
     Indication: ANXIETY
     Dosage: 1MG AS REQUIRED
     Dates: start: 20070926

REACTIONS (5)
  - BLISTER [None]
  - CARDIAC DISORDER [None]
  - HEADACHE [None]
  - OROPHARYNGEAL PAIN [None]
  - RASH [None]
